FAERS Safety Report 23714169 (Version 1)
Quarter: 2024Q2

REPORT INFORMATION
  Report Type: Spontaneous
  Country: US (occurrence: US)
  Receive Date: 20240405
  Receipt Date: 20240405
  Transmission Date: 20240715
  Serious: No
  Sender: FDA-Public Use
  Company Number: US-SA-SAC20240402000742

PATIENT
  Age: 52 Year
  Sex: Female
  Weight: 128 kg

DRUGS (8)
  1. DUPIXENT [Suspect]
     Active Substance: DUPILUMAB
     Indication: Dermatitis atopic
     Dosage: 300 MG, QOW
     Route: 058
     Dates: end: 202401
  2. PANTOPRAZOLE SODIUM [Concomitant]
     Active Substance: PANTOPRAZOLE SODIUM
  3. ACETAMINOPHEN [Concomitant]
     Active Substance: ACETAMINOPHEN
  4. MESALAMINE [Concomitant]
     Active Substance: MESALAMINE
  5. FLONASE ALLERGY RELIEF [Concomitant]
     Active Substance: FLUTICASONE PROPIONATE
  6. BACLOFEN [Concomitant]
     Active Substance: BACLOFEN
  7. CLOBETASOL [Concomitant]
     Active Substance: CLOBETASOL
  8. MODERNA COVID-19 VACCINE [Concomitant]
     Active Substance: ELASOMERAN
     Indication: Immunisation

REACTIONS (2)
  - Sinusitis [Unknown]
  - Pruritus [Unknown]

NARRATIVE: CASE EVENT DATE: 20240101
